FAERS Safety Report 5509587-9 (Version None)
Quarter: 2007Q4

REPORT INFORMATION
  Report Type: 
  Country: None (occurrence: None)
  Receive Date: 20071029
  Receipt Date: 20070810
  Transmission Date: 20080405
  Serious: Yes (Other)
  Sender: FDA-Public Use
  Company Number: USEN-75XP9D

PATIENT
  Sex: Female

DRUGS (4)
  1. DURAPREP [Suspect]
     Indication: PREOPERATIVE CARE
     Dosage: 26 ML, TOPICAL, SINGLE APPLICATION
     Route: 061
  2. BENZOIN [Concomitant]
  3. STERI-STRIPS [Concomitant]
  4. TELFA PAD AND TAPE [Concomitant]

REACTIONS (2)
  - RASH [None]
  - SKIN IRRITATION [None]
